FAERS Safety Report 9196304 (Version 3)
Quarter: 2013Q2

REPORT INFORMATION
  Report Type: Report from Study
  Country: DE (occurrence: DE)
  Receive Date: 20130328
  Receipt Date: 20130510
  Transmission Date: 20140414
  Serious: Yes (Death)
  Sender: FDA-Public Use
  Company Number: DE-ASTELLAS-2013EU002733

PATIENT
  Age: 63 Year
  Sex: Male
  Weight: 89 kg

DRUGS (3)
  1. BLINDED ENZALUTAMIDE [Suspect]
     Indication: PROSTATE CANCER METASTATIC
     Dosage: 40 MG, QID
     Route: 048
     Dates: start: 20120312
  2. MAGNESIUM [Concomitant]
     Indication: PROPHYLAXIS
     Dosage: 500 MG, PRN
     Route: 048
     Dates: start: 20120827
  3. TRIPTORELIN [Concomitant]
     Indication: PROSTATE CANCER
     Dosage: 11.25 MG, 1 IN 3 M
     Route: 058
     Dates: start: 200812

REACTIONS (1)
  - Acute myocardial infarction [Fatal]
